FAERS Safety Report 24425172 (Version 1)
Quarter: 2024Q4

REPORT INFORMATION
  Report Type: Spontaneous
  Country: JP (occurrence: JP)
  Receive Date: 20241010
  Receipt Date: 20241010
  Transmission Date: 20250115
  Serious: Yes (Other)
  Sender: BIOGEN
  Company Number: JP-BIOGEN-2024BI01285780

PATIENT
  Age: 0 Year
  Sex: Female

DRUGS (2)
  1. SPINRAZA [Suspect]
     Active Substance: NUSINERSEN
     Indication: Spinal muscular atrophy
     Route: 050
     Dates: start: 20240520, end: 20240520
  2. ZOLGENSMA [Concomitant]
     Active Substance: ONASEMNOGENE ABEPARVOVEC-XIOI
     Route: 050

REACTIONS (2)
  - Accident [Recovered/Resolved]
  - Subdural haematoma [Not Recovered/Not Resolved]

NARRATIVE: CASE EVENT DATE: 20240901
